FAERS Safety Report 6959597-X (Version None)
Quarter: 2010Q3

REPORT INFORMATION
  Report Type: 
  Country: None (occurrence: None)
  Receive Date: 20100830
  Receipt Date: 20100823
  Transmission Date: 20110219
  Serious: No
  Sender: FDA-Public Use
  Company Number: 20096572

PATIENT
  Sex: Male

DRUGS (1)
  1. LIORESAL [Suspect]
     Indication: MUSCLE SPASTICITY
     Dosage: 40 MCG, DAILY, INTRATHECAL
     Route: 037

REACTIONS (8)
  - BURNING SENSATION [None]
  - DEVICE BREAKAGE [None]
  - DRUG INEFFECTIVE [None]
  - DRUG WITHDRAWAL SYNDROME [None]
  - HYPERTONIA [None]
  - LOSS OF CONSCIOUSNESS [None]
  - NIGHTMARE [None]
  - PANIC ATTACK [None]
